FAERS Safety Report 17693731 (Version 1)
Quarter: 2020Q2

REPORT INFORMATION
  Report Type: Spontaneous
  Country: US (occurrence: US)
  Receive Date: 20200422
  Receipt Date: 20200422
  Transmission Date: 20200714
  Serious: Yes (Other)
  Sender: FDA-Public Use
  Company Number: None

PATIENT
  Age: 55 Year
  Sex: Male
  Weight: 123.3 kg

DRUGS (2)
  1. GLATIRAMER [Suspect]
     Active Substance: GLATIRAMER
     Indication: RELAPSING-REMITTING MULTIPLE SCLEROSIS
     Dosage: ?          OTHER FREQUENCY:THREE TIMES A WEEK;?
     Route: 058
     Dates: start: 20200330, end: 20200406
  2. GLATIRAMER [Concomitant]
     Active Substance: GLATIRAMER
     Dates: start: 20200330, end: 20200406

REACTIONS (6)
  - Chills [None]
  - Injection site bruising [None]
  - Tremor [None]
  - Flushing [None]
  - Pyrexia [None]
  - Injection site swelling [None]

NARRATIVE: CASE EVENT DATE: 20200406
